FAERS Safety Report 5479598-0 (Version None)
Quarter: 2007Q3

REPORT INFORMATION
  Report Type: 
  Country: None (occurrence: None)
  Receive Date: 20070910
  Receipt Date: 20070531
  Transmission Date: 20080115
  Serious: Yes (Hospitalization)
  Sender: FDA-Public Use
  Company Number: 37668

PATIENT
  Age: 74 Year
  Sex: Male

DRUGS (1)
  1. ETOPOSIDE [Suspect]
     Indication: SMALL CELL LUNG CANCER STAGE UNSPECIFIED
     Dosage: 234MG/IV
     Route: 042
     Dates: start: 20070508

REACTIONS (1)
  - PNEUMONIA [None]
